FAERS Safety Report 8474481-0 (Version None)
Quarter: 2012Q2

REPORT INFORMATION
  Report Type: 
  Country: None (occurrence: None)
  Receive Date: 20120628
  Receipt Date: 20120620
  Transmission Date: 20120825
  Serious: Yes (Hospitalization)
  Sender: FDA-Public Use
  Company Number: US-BAYER-2012-017419

PATIENT
  Age: 35 Year
  Sex: Female
  Weight: 52.154 kg

DRUGS (6)
  1. CLINDAMYCIN [Concomitant]
     Dosage: 150 MG, UNK
     Dates: start: 20050912
  2. VALTREX [Concomitant]
     Dosage: 500 MG, UNK
     Dates: start: 20050201
  3. PREDNISONE TAB [Concomitant]
     Dosage: 5 MG, UNK
     Dates: start: 20050912
  4. YASMIN [Suspect]
     Dosage: UNK
     Dates: start: 20020101, end: 20080101
  5. FLUCONAZOLE [Concomitant]
     Dosage: 150 MG, UNK
     Dates: start: 20050912
  6. LORAZEPAM [Concomitant]
     Dosage: 1 MG, UNK
     Dates: start: 20050912

REACTIONS (3)
  - CHOLECYSTITIS [None]
  - CHOLELITHIASIS [None]
  - PAIN [None]
